FAERS Safety Report 15426307 (Version 3)
Quarter: 2019Q2

REPORT INFORMATION
  Report Type: Spontaneous
  Country: US (occurrence: US)
  Receive Date: 20180925
  Receipt Date: 20190523
  Transmission Date: 20190711
  Serious: Yes (Hospitalization)
  Sender: FDA-Public Use
  Company Number: US-PFIZER INC-2018385210

PATIENT
  Age: 60 Year
  Sex: Female
  Weight: 88 kg

DRUGS (17)
  1. IBUPROFEN. [Concomitant]
     Active Substance: IBUPROFEN
     Dosage: 800 MG, AS NEEDED
     Dates: start: 20180502
  2. MYRBETRIQ [Concomitant]
     Active Substance: MIRABEGRON
     Dosage: 50 MG, UNK(1 EACH)
     Dates: start: 20180505
  3. RISPERDON [Concomitant]
     Active Substance: RISPERIDONE
     Dosage: 1 MG, UNK(1/2 MORNING; 1/2 NIGHT)
     Dates: start: 201605
  4. BACLOFEN. [Concomitant]
     Active Substance: BACLOFEN
     Dosage: 10 MG, 2X/DAY
     Dates: start: 20190305
  5. DIPHENHYDRAMINE. [Concomitant]
     Active Substance: DIPHENHYDRAMINE
     Dosage: 50 MG, AS NEEDED(1 NIGHT EACH; AS NEEDED)
     Dates: start: 20180601
  6. LAMOTRIGINE. [Concomitant]
     Active Substance: LAMOTRIGINE
     Dosage: UNK(200 MG, 1/2 NIGHT)
     Dates: start: 201305
  7. TRAMADOL. [Concomitant]
     Active Substance: TRAMADOL
     Dosage: 50 MG, 2X/DAY
     Dates: start: 20190214
  8. BUPROPION. [Concomitant]
     Active Substance: BUPROPION
     Dosage: 300 MG, DAILY(1 DAILY EACH)
     Dates: start: 20160502
  9. PREDNISONE. [Concomitant]
     Active Substance: PREDNISONE
     Dosage: 20 MG, DAILY (1-DAILY)
     Dates: start: 20190422
  10. LYRICA [Suspect]
     Active Substance: PREGABALIN
     Indication: NEURALGIA
     Dosage: UNK
     Dates: start: 2015
  11. LYRICA [Suspect]
     Active Substance: PREGABALIN
     Indication: BURNING SENSATION
     Dosage: 100 MG, 3X/DAY
     Route: 048
     Dates: start: 20180917
  12. DESVENLAFAXINE. [Concomitant]
     Active Substance: DESVENLAFAXINE
     Dosage: 50 MG, UNK(1 EACH)
     Dates: start: 20160502
  13. ATORVASTATIN CALCIUM. [Concomitant]
     Active Substance: ATORVASTATIN CALCIUM
     Dosage: 10 MG, DAILY (1 EACH NIGHT)
     Dates: start: 201404
  14. LYRICA [Suspect]
     Active Substance: PREGABALIN
     Dosage: 600 MG, AS NEEDED (3 EACH)
     Dates: start: 20190304
  15. BUSPIRONE [Concomitant]
     Active Substance: BUSPIRONE HYDROCHLORIDE
     Dosage: 10 MG, AS NEEDED
     Dates: start: 20190227
  16. LISINOPRIL. [Concomitant]
     Active Substance: LISINOPRIL
     Dosage: 10 MG, UNK(1 EACH)
     Dates: start: 201205
  17. CHLORTHALIDONE. [Concomitant]
     Active Substance: CHLORTHALIDONE
     Dosage: 25 MG, UNK(1/2 MORNING; 1/2 )
     Dates: start: 201605

REACTIONS (9)
  - Paraesthesia [Unknown]
  - Arthralgia [Unknown]
  - Hypoaesthesia [Not Recovered/Not Resolved]
  - Fall [Unknown]
  - Thermal burn [Unknown]
  - Walking disability [Unknown]
  - Cold burn [Unknown]
  - Muscular weakness [Unknown]
  - Carpal tunnel syndrome [Unknown]

NARRATIVE: CASE EVENT DATE: 201608
